FAERS Safety Report 16882594 (Version 3)
Quarter: 2021Q4

REPORT INFORMATION
  Report Type: Spontaneous
  Country: CA (occurrence: CA)
  Receive Date: 20191003
  Receipt Date: 20211029
  Transmission Date: 20220303
  Serious: Yes (Other)
  Sender: FDA-Public Use
  Company Number: CA-APOTEX-2017AP018284

PATIENT
  Age: 59 Year
  Sex: Female

DRUGS (3)
  1. CIPROFLOXACIN [Suspect]
     Active Substance: CIPROFLOXACIN
     Indication: Pyelonephritis
     Dosage: 500 MILLIGRAM, TWO TIMES A DAY
     Route: 065
  2. GAVISCON [Suspect]
     Active Substance: ALUMINUM HYDROXIDE\MAGNESIUM CARBONATE
     Indication: Product used for unknown indication
     Dosage: UNK
     Route: 065
  3. ALUMINUM HYDROXIDE\SODIUM ALGINATE [Suspect]
     Active Substance: ALUMINUM HYDROXIDE\SODIUM ALGINATE
     Indication: Product used for unknown indication
     Dosage: UNK
     Route: 065

REACTIONS (3)
  - Vaginal haemorrhage [Recovered/Resolved]
  - Vaginal infection [Recovered/Resolved]
  - Off label use [Recovered/Resolved]
